FAERS Safety Report 24228743 (Version 1)
Quarter: 2024Q3

REPORT INFORMATION
  Report Type: Spontaneous
  Country: IN (occurrence: IN)
  Receive Date: 20240820
  Receipt Date: 20240820
  Transmission Date: 20241016
  Serious: Yes (Hospitalization, Other)
  Sender: NOVARTIS
  Company Number: IN-SANDOZ-SDZ2024IN020666

PATIENT
  Sex: Male

DRUGS (2)
  1. TACROLIMUS [Suspect]
     Active Substance: TACROLIMUS
     Indication: Renal transplant
     Dosage: 3 MG, QD (1.5 MG, BID)
     Route: 048
  2. MYFORTIC [Suspect]
     Active Substance: MYCOPHENOLATE SODIUM
     Indication: Renal transplant
     Dosage: 720 MG, QD (360 MG, BID)
     Route: 048

REACTIONS (4)
  - Exercise tolerance decreased [Unknown]
  - Fatigue [Unknown]
  - Asthenia [Unknown]
  - Erectile dysfunction [Unknown]
